FAERS Safety Report 4741673-3 (Version None)
Quarter: 2005Q3

REPORT INFORMATION
  Report Type: 
  Country: None (occurrence: None)
  Receive Date: 20050808
  Receipt Date: 20050725
  Transmission Date: 20060218
  Serious: Yes (Hospitalization)
  Sender: FDA-Public Use
  Company Number: 2005-BP-12554RO

PATIENT
  Age: 66 Year
  Sex: Female

DRUGS (3)
  1. LEUCOVORIN CALCIUM [Suspect]
     Indication: COLON CANCER
     Dosage: 25 MG TID , PO
     Route: 048
     Dates: start: 20050311, end: 20050407
  2. UFT [Suspect]
     Indication: COLON CANCER
     Dosage: 1 GM TID , PO
     Route: 048
     Dates: start: 20050311, end: 20050407
  3. GLIMICRON (GLICLAZIDE) [Concomitant]

REACTIONS (1)
  - HYPERBILIRUBINAEMIA [None]
